FAERS Safety Report 14254421 (Version 1)
Quarter: 2017Q4

REPORT INFORMATION
  Report Type: Spontaneous
  Country: US (occurrence: US)
  Receive Date: 20171205
  Receipt Date: 20171205
  Transmission Date: 20180321
  Serious: Yes (Other)
  Sender: FDA-Public Use
  Company Number: US-PFIZER INC-2017515016

PATIENT
  Age: 65 Year
  Sex: Female
  Weight: 82.55 kg

DRUGS (3)
  1. VALSARTAN. [Concomitant]
     Active Substance: VALSARTAN
     Indication: HYPERTENSION
     Dosage: 320MG ONE TABLET ONCE A DAY
  2. ATROPINE SULFATE/DIPHENOXYLATE HYDROCHLORIDE [Suspect]
     Active Substance: ATROPINE SULFATE\DIPHENOXYLATE HYDROCHLORIDE
     Indication: DIVERTICULITIS
     Dosage: ONE TABLET EVERY 4 HOURS AS NEEDED
     Route: 048
     Dates: start: 2013, end: 20171114
  3. POTASSIUM CL [Concomitant]
     Active Substance: POTASSIUM CHLORIDE
     Indication: BLOOD POTASSIUM DECREASED
     Dosage: 10 MG, 1X/DAY

REACTIONS (2)
  - Rectal haemorrhage [Recovered/Resolved]
  - Stomach mass [Unknown]

NARRATIVE: CASE EVENT DATE: 2016
